FAERS Safety Report 8313936-6 (Version None)
Quarter: 2012Q2

REPORT INFORMATION
  Report Type: 
  Country: None (occurrence: None)
  Receive Date: 20120426
  Receipt Date: 20120426
  Transmission Date: 20120825
  Serious: Yes (Other)
  Sender: FDA-Public Use
  Company Number: None

PATIENT
  Sex: Female
  Weight: 35.5 kg

DRUGS (13)
  1. FERROUS SULFATE TAB [Concomitant]
     Route: 048
  2. TEFLARO [Suspect]
     Indication: OSTEOMYELITIS CHRONIC
     Dosage: 400.0 MG
     Route: 042
     Dates: start: 20120313, end: 20120327
  3. NEPHRO-VITE [Concomitant]
     Route: 048
  4. MIRTAZAPINE [Concomitant]
     Route: 048
  5. FLAGYL [Concomitant]
     Route: 042
  6. FLUCONAZOLE [Concomitant]
     Route: 048
  7. CLORPACTIN TOPICAL [Concomitant]
     Route: 061
  8. NORETHINDRONE [Concomitant]
     Route: 048
  9. MAGNESIUM OXIDE [Concomitant]
     Route: 048
  10. EPOGEN [Concomitant]
     Route: 058
  11. NYSTATIN [Concomitant]
     Route: 061
  12. CEFEPIME [Concomitant]
     Route: 042
  13. LANSOPRAZOLE [Concomitant]
     Route: 048

REACTIONS (3)
  - PRURITUS [None]
  - BLOOD PRESSURE DECREASED [None]
  - RASH [None]
